FAERS Safety Report 7064948-4 (Version None)
Quarter: 2010Q4

REPORT INFORMATION
  Report Type: 
  Country: None (occurrence: None)
  Receive Date: 20101027
  Receipt Date: 20101022
  Transmission Date: 20110411
  Serious: Yes (Hospitalization)
  Sender: FDA-Public Use
  Company Number: HU-ELI_LILLY_AND_COMPANY-HU201007003045

PATIENT
  Sex: Male
  Weight: 65 kg

DRUGS (19)
  1. NECITUMUMAB (11F8) (LY3012211) [Suspect]
     Indication: NON-SMALL CELL LUNG CANCER
     Dosage: 800 MG, OTHER
     Route: 042
     Dates: start: 20100618, end: 20100709
  2. NECITUMUMAB (11F8) (LY3012211) [Suspect]
     Dates: start: 20100722
  3. PEMETREXED [Suspect]
     Indication: NON-SMALL CELL LUNG CANCER
     Dosage: 800 MG, OTHER
     Route: 042
     Dates: start: 20100618, end: 20100709
  4. PEMETREXED [Suspect]
     Dosage: REDUCED DOSEUNK, UNK
     Route: 042
     Dates: start: 20100722
  5. CISPLATIN [Suspect]
     Indication: NON-SMALL CELL LUNG CANCER
     Dosage: 128 MG, UNK
     Dates: start: 20100618, end: 20100709
  6. CISPLATIN [Suspect]
     Dosage: REDUCED DOSE, UNK
     Route: 042
     Dates: start: 20100722
  7. SERETIDE [Concomitant]
  8. SPIRIVA [Concomitant]
  9. VENTOLIN                                /SCH/ [Concomitant]
  10. THEOSPIREX [Concomitant]
  11. AMBROXOL [Concomitant]
  12. ANDAXIN [Concomitant]
  13. TIAPRIDAL [Concomitant]
  14. FOLIC ACID [Concomitant]
     Indication: PREMEDICATION
     Dates: start: 20100610
  15. VITAMIN B-12 [Concomitant]
     Indication: PREMEDICATION
     Dates: start: 20100610
  16. MEGACE [Concomitant]
     Indication: DECREASED APPETITE
     Dates: start: 20100625, end: 20100630
  17. DALACIN                            /00166002/ [Concomitant]
     Indication: RASH
     Dates: start: 20100625
  18. ELOCON [Concomitant]
     Indication: RASH
     Dates: start: 20100625
  19. QUAMATEL [Concomitant]
     Indication: PROPHYLAXIS AGAINST GASTROINTESTINAL ULCER
     Dates: start: 20100630

REACTIONS (6)
  - ATRIAL FIBRILLATION [None]
  - GENERAL PHYSICAL HEALTH DETERIORATION [None]
  - HAEMATOTOXICITY [None]
  - ILEUS PARALYTIC [None]
  - RENAL FAILURE [None]
  - TACHYCARDIA [None]
